FAERS Safety Report 23798217 (Version 2)
Quarter: 2024Q2

REPORT INFORMATION
  Report Type: Report from Study
  Country: CA (occurrence: CA)
  Receive Date: 20240430
  Receipt Date: 20240625
  Transmission Date: 20240716
  Serious: Yes (Other)
  Sender: FDA-Public Use
  Company Number: CA-JAMP PHARMA CORPORATION-2023-JAM-CA-01903

PATIENT
  Age: 27 Year
  Sex: Female

DRUGS (2)
  1. SIMLANDI [Suspect]
     Active Substance: ADALIMUMAB-RYVK
     Indication: Crohn^s disease
     Dosage: 40 MG, EVERY 2 WEEKS, RESTARTED
     Route: 058
     Dates: start: 20240415
  2. SIMLANDI [Suspect]
     Active Substance: ADALIMUMAB-RYVK
     Indication: Crohn^s disease
     Dosage: 40 MG, EVERY 2 WEEKS
     Route: 058
     Dates: start: 20230823

REACTIONS (14)
  - Haematochezia [Recovered/Resolved]
  - Gastrointestinal disorder [Recovered/Resolved]
  - Viral infection [Recovered/Resolved]
  - Drug ineffective [Not Recovered/Not Resolved]
  - Headache [Unknown]
  - Cough [Unknown]
  - Arthralgia [Unknown]
  - Pyrexia [Unknown]
  - Influenza virus test positive [Unknown]
  - Respiratory disorder [Unknown]
  - Malaise [Unknown]
  - Fatigue [Unknown]
  - Drug level decreased [Unknown]
  - Drug specific antibody present [Unknown]

NARRATIVE: CASE EVENT DATE: 20231004
